FAERS Safety Report 10739465 (Version 3)
Quarter: 2015Q1

REPORT INFORMATION
  Report Type: Spontaneous
  Country: JP (occurrence: JP)
  Receive Date: 20150126
  Receipt Date: 20150224
  Transmission Date: 20150721
  Serious: Yes (Death)
  Sender: FDA-Public Use
  Company Number: JP-SHIONOGI, INC-2015000082

PATIENT
  Age: 85 Year
  Sex: Male
  Weight: 52 kg

DRUGS (2)
  1. FUROSEMIDE. [Concomitant]
     Active Substance: FUROSEMIDE
     Indication: POLYURIA
     Dosage: 40 MG, QD
     Route: 041
     Dates: start: 20150103, end: 20150107
  2. FINIBAX [Suspect]
     Active Substance: DORIPENEM MONOHYDRATE
     Indication: PNEUMONIA
     Dosage: 0.25 G, BID
     Route: 041
     Dates: start: 20150103, end: 20150107

REACTIONS (2)
  - Multi-organ failure [Fatal]
  - Acute kidney injury [Fatal]

NARRATIVE: CASE EVENT DATE: 20150107
